FAERS Safety Report 4960024-2 (Version None)
Quarter: 2006Q1

REPORT INFORMATION
  Report Type: 
  Country: None (occurrence: None)
  Receive Date: 20060327
  Receipt Date: 20060315
  Transmission Date: 20060701
  Serious: Yes (Hospitalization)
  Sender: FDA-Public Use
  Company Number: URSO-2006-010

PATIENT
  Age: 64 Year
  Sex: Female
  Weight: 108.8633 kg

DRUGS (1)
  1. URSO                    (URSODEXYCHOLIC ACID) [Suspect]
     Indication: HEPATITIS
     Dosage: PO
     Route: 048

REACTIONS (3)
  - INFECTION [None]
  - LEUKOPENIA [None]
  - SEPSIS [None]
